FAERS Safety Report 9246377 (Version 1)
Quarter: 2013Q2

REPORT INFORMATION
  Report Type: Other
  Country: IT (occurrence: IT)
  Receive Date: 20130422
  Receipt Date: 20130422
  Transmission Date: 20140414
  Serious: Yes (Hospitalization)
  Sender: FDA-Public Use
  Company Number: IT-ACTAVIS-2013-06829

PATIENT
  Age: 75 Year
  Sex: Female
  Weight: 75 kg

DRUGS (1)
  1. PARACETAMOL (UNKNOWN) [Suspect]
     Indication: NECK PAIN
     Dosage: 1 DF, SINGLE
     Route: 048
     Dates: start: 20130318, end: 20130318

REACTIONS (6)
  - Angioedema [Recovered/Resolved]
  - Asthenia [Recovered/Resolved]
  - Laryngeal oedema [Recovered/Resolved]
  - Presyncope [Recovered/Resolved]
  - Urticaria [Recovered/Resolved]
  - Pruritus [Recovered/Resolved]
